FAERS Safety Report 4538321-4 (Version None)
Quarter: 2004Q4

REPORT INFORMATION
  Report Type: 
  Country: None (occurrence: None)
  Receive Date: 20041223
  Receipt Date: 20040315
  Transmission Date: 20050328
  Serious: Yes (Death)
  Sender: FDA-Public Use
  Company Number: 6007343

PATIENT
  Age: 88 Year
  Sex: Female

DRUGS (3)
  1. AZATHIOPRINE [Suspect]
     Indication: RHEUMATOID ARTHRITIS
     Dosage: ORAL
     Route: 048
  2. ALENDRONATE (ALENDRONATE SODIUM) [Concomitant]
  3. OMEPRAZOLE [Concomitant]

REACTIONS (4)
  - ANAEMIA [None]
  - GENERAL PHYSICAL HEALTH DETERIORATION [None]
  - NEUTROPENIA [None]
  - TOXIC SHOCK SYNDROME STAPHYLOCOCCAL [None]
